FAERS Safety Report 11340152 (Version 1)
Quarter: 2015Q3

REPORT INFORMATION
  Report Type: Spontaneous
  Country: US (occurrence: None)
  Receive Date: 20150629
  Receipt Date: 20150629
  Transmission Date: 20151125
  Serious: No
  Sender: FDA-Public Use
  Company Number: A-US2014-106065

PATIENT
  Age: 33 Year
  Sex: Female

DRUGS (12)
  1. PREVACID [Concomitant]
     Active Substance: LANSOPRAZOLE
  2. POTASSIUM [Concomitant]
     Active Substance: POTASSIUM
  3. TRAMADOL. [Concomitant]
     Active Substance: TRAMADOL
  4. TRINESSA (ETHINYLESTRADIOL, NORGESTIMATE) [Concomitant]
  5. SINGULAIR (MONTELUKAST SODIUM) [Concomitant]
  6. OPSUMIT [Suspect]
     Active Substance: MACITENTAN
     Indication: PULMONARY ARTERIAL HYPERTENSION
     Route: 048
     Dates: start: 20140320
  7. LORATADINE. [Concomitant]
     Active Substance: LORATADINE
  8. DIAZEPAM. [Concomitant]
     Active Substance: DIAZEPAM
  9. SPIRONOLACTONE. [Concomitant]
     Active Substance: SPIRONOLACTONE
  10. SILDENAFIL. [Concomitant]
     Active Substance: SILDENAFIL
  11. GABAPENTIN. [Concomitant]
     Active Substance: GABAPENTIN
  12. LASIX [Concomitant]
     Active Substance: FUROSEMIDE

REACTIONS (2)
  - Concomitant disease aggravated [None]
  - Alopecia [None]
